FAERS Safety Report 11247898 (Version 3)
Quarter: 2017Q2

REPORT INFORMATION
  Report Type: Report from Study
  Country: DE (occurrence: DE)
  Receive Date: 20150708
  Receipt Date: 20170422
  Transmission Date: 20170829
  Serious: Yes (Hospitalization, Other)
  Sender: FDA-Public Use
  Company Number: DE-ROCHE-1590511

PATIENT
  Age: 58 Year
  Sex: Female
  Weight: 61 kg

DRUGS (5)
  1. EPIRUBICINE [Suspect]
     Active Substance: EPIRUBICIN
     Indication: HER-2 POSITIVE BREAST CANCER
     Dosage: LAST DOSE PRIOR TO SAE: 16/MAR/2015
     Route: 042
     Dates: start: 20150206
  2. CYCLOPHOSPHAMIDE. [Suspect]
     Active Substance: CYCLOPHOSPHAMIDE
     Indication: HER-2 POSITIVE BREAST CANCER
     Dosage: LAST DOSE PRIOR TO SAE: 27/MAY/2015
     Route: 042
     Dates: start: 20150511
  3. PERTUZUMAB [Suspect]
     Active Substance: PERTUZUMAB
     Indication: HER-2 POSITIVE BREAST CANCER
     Dosage: LAST DOSE PRIOR TO SAE: 08/MAY/2015
     Route: 042
     Dates: start: 20150417, end: 20150605
  4. PACLITAXEL. [Suspect]
     Active Substance: PACLITAXEL
     Indication: HER-2 POSITIVE BREAST CANCER
     Dosage: LAST DOSE PRIOR TO SAE: 27/APR/2015
     Route: 042
     Dates: start: 20150330
  5. TRASTUZUMAB [Suspect]
     Active Substance: TRASTUZUMAB
     Indication: HER-2 POSITIVE BREAST CANCER
     Dosage: LAST DOSE PRIOR TO SAE: 08/MAY/2015, FLUID
     Route: 042
     Dates: start: 20150417, end: 20150605

REACTIONS (2)
  - Neutropenia [Recovered/Resolved]
  - Hepatotoxicity [Unknown]

NARRATIVE: CASE EVENT DATE: 20150605
